FAERS Safety Report 9244731 (Version 2)
Quarter: 2013Q3

REPORT INFORMATION
  Report Type: Spontaneous
  Country: GR (occurrence: GR)
  Receive Date: 20130422
  Receipt Date: 20130708
  Transmission Date: 20140515
  Serious: Yes (Other)
  Sender: FDA-Public Use
  Company Number: GR-BAYER-2013-046534

PATIENT
  Age: 76 Year
  Sex: Female

DRUGS (2)
  1. ADALAT [Suspect]
     Indication: HYPERTENSION
     Dosage: 5 MG, QD
     Dates: start: 20130410, end: 20130414
  2. DEPON [Concomitant]
     Indication: ARTHRALGIA
     Dosage: UNK

REACTIONS (4)
  - Hypertension [Recovered/Resolved]
  - Hypoaesthesia [None]
  - Drug ineffective [None]
  - Headache [Not Recovered/Not Resolved]
